FAERS Safety Report 12225053 (Version 1)
Quarter: 2016Q1

REPORT INFORMATION
  Report Type: Spontaneous
  Country: FR (occurrence: FR)
  Receive Date: 20160331
  Receipt Date: 20160331
  Transmission Date: 20160526
  Serious: Yes (Hospitalization)
  Sender: FDA-Public Use
  Company Number: PHHY2015FR126180

PATIENT
  Age: 75 Year
  Sex: Female

DRUGS (6)
  1. ZOPHREN [Suspect]
     Active Substance: ONDANSETRON
     Indication: PREMEDICATION
     Dosage: UNK, QD
     Route: 042
     Dates: start: 20150519, end: 20150519
  2. POLARAMINE [Concomitant]
     Active Substance: DEXCHLORPHENIRAMINE MALEATE
     Indication: PREMEDICATION
     Dosage: 2.5 MG, QD
     Route: 042
     Dates: start: 20150519, end: 20150519
  3. PACLITAXEL KABI [Suspect]
     Active Substance: PACLITAXEL
     Indication: OVARIAN CANCER
     Dosage: 134.1 MG, QD
     Route: 042
     Dates: start: 20150519, end: 20150519
  4. METHYLPREDNISOLONE MYLAN [Suspect]
     Active Substance: METHYLPREDNISOLONE
     Indication: PREMEDICATION
     Dosage: 60 MG, QD
     Route: 042
     Dates: start: 20150519, end: 20150519
  5. CARBOPLATINE KABI [Suspect]
     Active Substance: CARBOPLATIN
     Indication: OVARIAN CANCER
     Dosage: 112 MG, QD
     Route: 042
     Dates: start: 20150519, end: 20150519
  6. AZANTAC [Suspect]
     Active Substance: RANITIDINE HYDROCHLORIDE
     Indication: PREMEDICATION
     Dosage: 25 MG, QD
     Route: 042
     Dates: start: 20150519, end: 20150519

REACTIONS (2)
  - Erythema [Recovered/Resolved]
  - Malaise [Recovered/Resolved]

NARRATIVE: CASE EVENT DATE: 20150519
